FAERS Safety Report 4474054-0 (Version None)
Quarter: 2004Q4

REPORT INFORMATION
  Report Type: 
  Country: None (occurrence: None)
  Receive Date: 20041008
  Receipt Date: 20040924
  Transmission Date: 20050328
  Serious: Yes (Disabling)
  Sender: FDA-Public Use
  Company Number: 12418893

PATIENT
  Age: 51 Year
  Sex: Female

DRUGS (16)
  1. ESTRACE [Suspect]
     Indication: HORMONE REPLACEMENT THERAPY
     Dosage: 1 MILLIGRAM .5/1 DAY ORAL
     Route: 048
     Dates: start: 19921117, end: 19990308
  2. ESTRACE [Suspect]
     Dosage: 1 WEEK VAG
     Route: 067
     Dates: start: 19980602
  3. PREMARIN [Suspect]
     Indication: HORMONE REPLACEMENT THERAPY
     Dosage: .6 MILLIGRAM 1 DAY ORAL
     Route: 048
     Dates: start: 19940215
  4. ESTRATAB [Suspect]
     Indication: HORMONE REPLACEMENT THERAPY
     Dosage: .3 MILLIGRAM 1 DAY ORAL
     Route: 048
     Dates: start: 19990308, end: 19991102
  5. PROVERA [Suspect]
     Indication: HORMONE REPLACEMENT THERAPY
     Dosage: 2.5 MILLIGRAM 1/1 DAY
     Dates: start: 19921117
  6. SUDAFED 12 HOUR [Concomitant]
  7. MULTIVITAMIN (MULTIPLE VITAMINS) [Concomitant]
  8. CHROMIUM(CHROMIUM) [Concomitant]
  9. CALCIUM (CALCIUM) [Concomitant]
  10. COD LIVER OIL (MULTIPLE VITAMINS) [Concomitant]
  11. VITAMIN E [Concomitant]
  12. MAGNESIUM (MAGNESIUM) [Concomitant]
  13. SELENIUM (SELENIUM) [Concomitant]
  14. ASPIRIN [Concomitant]
  15. GINKGO (GINKGO BILOBA) [Concomitant]
  16. VITAMIN D (VITAMIN D) [Concomitant]

REACTIONS (16)
  - ANEURYSM [None]
  - BLINDNESS UNILATERAL [None]
  - DIVERTICULUM [None]
  - JOINT EFFUSION [None]
  - MACULAR OEDEMA [None]
  - NEOVASCULARISATION [None]
  - OSTEOARTHRITIS [None]
  - OSTEOPENIA [None]
  - OVARIAN CYST [None]
  - RETINAL HAEMORRHAGE [None]
  - RETINAL ISCHAEMIA [None]
  - RETINAL VEIN OCCLUSION [None]
  - VAGINITIS ATROPHIC [None]
  - VITREOUS ADHESIONS [None]
  - VITREOUS FLOATERS [None]
  - VITREOUS HAEMORRHAGE [None]
